FAERS Safety Report 8791001 (Version 3)
Quarter: 2013Q1

REPORT INFORMATION
  Report Type: Spontaneous
  Country: DE (occurrence: None)
  Receive Date: 20120910
  Receipt Date: 20121005
  Transmission Date: 20140127
  Serious: Yes (Other)
  Sender: FDA-Public Use
  Company Number: 2012190102

PATIENT
  Age: 28 Year
  Sex: Female
  Weight: 117 kg

DRUGS (1)
  1. FRAGMIN P FORTE (DALTEPARIN SODIUM) SOLUTION FOR INJECTION [Suspect]
     Indication: OVARIAN HYPERSTIMULATION SYNDROME
     Route: 058
     Dates: start: 20120713, end: 20120726

REACTIONS (7)
  - Off label use [None]
  - Injection site erythema [None]
  - Injection site pruritus [None]
  - Injection site warmth [None]
  - Multiple pregnancy [None]
  - Abortion spontaneous [None]
  - Foetal death [None]
